FAERS Safety Report 4421754-4 (Version None)
Quarter: 2004Q3

REPORT INFORMATION
  Report Type: 
  Country: None (occurrence: None)
  Receive Date: 20040809
  Receipt Date: 20040809
  Transmission Date: 20050211
  Serious: Yes (Other)
  Sender: FDA-Public Use
  Company Number: None

PATIENT
  Age: 64 Year
  Sex: Male
  Weight: 87.3 kg

DRUGS (1)
  1. PROTAMINE SULFATE [Suspect]

REACTIONS (1)
  - CARDIAC ARREST [None]
